FAERS Safety Report 11621733 (Version 1)
Quarter: 2015Q4

REPORT INFORMATION
  Report Type: Spontaneous
  Country: GB (occurrence: GB)
  Receive Date: 20151013
  Receipt Date: 20151013
  Transmission Date: 20160304
  Serious: Yes (Other)
  Sender: FDA-Public Use
  Company Number: GB-ROCHE-1645077

PATIENT
  Age: 71 Year
  Sex: Female

DRUGS (8)
  1. MABTHERA [Suspect]
     Active Substance: RITUXIMAB
     Indication: B-CELL LYMPHOMA
     Dosage: 8 CYCLES OF INDUCTION THERAPY
     Route: 042
     Dates: start: 200909, end: 201003
  2. MABTHERA [Suspect]
     Active Substance: RITUXIMAB
     Dosage: MAINTENANCE THERAPY
     Route: 042
     Dates: start: 201307, end: 201507
  3. CYCLOPHOSPHAMIDE. [Concomitant]
     Active Substance: CYCLOPHOSPHAMIDE
     Indication: B-CELL LYMPHOMA
     Dosage: 8 CYCLES OF INDUCTION THERAPY
     Route: 065
     Dates: start: 200909, end: 201003
  4. MABTHERA [Suspect]
     Active Substance: RITUXIMAB
     Dosage: INDUCTION THERAPY : 6 CYCLES
     Route: 042
     Dates: start: 201302, end: 201307
  5. VINCRISTINE [Concomitant]
     Active Substance: VINCRISTINE
     Indication: B-CELL LYMPHOMA
     Dosage: 8 CYCLES OF INDUCTION THERAPY
     Route: 065
     Dates: start: 200909, end: 201003
  6. BENDAMUSTINE [Concomitant]
     Active Substance: BENDAMUSTINE
     Indication: B-CELL LYMPHOMA
     Dosage: 6 CYCLES
     Route: 065
     Dates: start: 201302, end: 201307
  7. MABTHERA [Suspect]
     Active Substance: RITUXIMAB
     Dosage: MAINTENANCE THERAPY
     Route: 042
     Dates: start: 201004, end: 201204
  8. PREDNISONE. [Concomitant]
     Active Substance: PREDNISONE
     Indication: B-CELL LYMPHOMA
     Dosage: 8 CYCLES OF INDUCTION THERAPY
     Route: 065
     Dates: start: 200909, end: 201003

REACTIONS (6)
  - Lower respiratory tract infection [Unknown]
  - Lymphoma [Unknown]
  - Urinary tract infection [Unknown]
  - Hypogammaglobulinaemia [Recovering/Resolving]
  - Back pain [Unknown]
  - Constipation [Unknown]
